FAERS Safety Report 7393869-2 (Version None)
Quarter: 2011Q1

REPORT INFORMATION
  Report Type: 
  Country: None (occurrence: None)
  Receive Date: 20110330
  Receipt Date: 20110330
  Transmission Date: 20110831
  Serious: Yes (Death)
  Sender: FDA-Public Use
  Company Number: None

PATIENT
  Age: 54 Year
  Sex: Female
  Weight: 48 kg

DRUGS (2)
  1. TAXOTERE [Suspect]
     Indication: NON-SMALL CELL LUNG CANCER
     Dosage: 74 MG ONCE IV DRIP
     Route: 041
     Dates: start: 20110321, end: 20110321
  2. CARBOPLATIN [Suspect]
     Indication: NON-SMALL CELL LUNG CANCER
     Dosage: 684 MG ONCE IV DRIP
     Route: 041
     Dates: start: 20110321, end: 20110321

REACTIONS (3)
  - INFUSION SITE REACTION [None]
  - COLLAPSE OF LUNG [None]
  - PRURITUS [None]
